FAERS Safety Report 5181586-9 (Version None)
Quarter: 2006Q4

REPORT INFORMATION
  Report Type: 
  Country: None (occurrence: None)
  Receive Date: 20061220
  Receipt Date: 20060206
  Transmission Date: 20070319
  Serious: No
  Sender: FDA-Public Use
  Company Number: US-GLAXOSMITHKLINE-A0592637A

PATIENT
  Age: 39 Year
  Sex: Female

DRUGS (1)
  1. COMMIT [Suspect]
     Dates: start: 20060130, end: 20060130

REACTIONS (7)
  - ABDOMINAL DISTENSION [None]
  - MALAISE [None]
  - PARAESTHESIA [None]
  - PARAESTHESIA ORAL [None]
  - RETCHING [None]
  - THROAT IRRITATION [None]
  - VOMITING [None]
